FAERS Safety Report 25367846 (Version 1)
Quarter: 2025Q2

REPORT INFORMATION
  Report Type: Spontaneous
  Country: US (occurrence: None)
  Receive Date: 20250527
  Receipt Date: 20250527
  Transmission Date: 20250717
  Serious: Yes (Other)
  Sender: FDA-CTU
  Company Number: None

PATIENT
  Age: 93 Year
  Sex: Female

DRUGS (7)
  1. CYCLOPHOSPHAMIDE [Suspect]
     Active Substance: CYCLOPHOSPHAMIDE
     Indication: Leukaemia
     Dosage: FREQUENCY : DAILY;?
     Route: 048
     Dates: start: 20241217
  2. ACYCLOVIR [Concomitant]
     Active Substance: ACYCLOVIR
  3. albuterol 0.083%i [Concomitant]
  4. FOLIC ACID [Concomitant]
     Active Substance: FOLIC ACID
  5. iamivudine [Concomitant]
  6. OXYCODONE [Suspect]
     Active Substance: OXYCODONE
  7. sodium chi 7% neb solution [Concomitant]

REACTIONS (3)
  - Muscular weakness [None]
  - Therapy change [None]
  - Walking aid user [None]

NARRATIVE: CASE EVENT DATE: 20250527
